FAERS Safety Report 20472698 (Version 1)
Quarter: 2022Q1

REPORT INFORMATION
  Report Type: Report from Study
  Country: US (occurrence: None)
  Receive Date: 20220215
  Receipt Date: 20220215
  Transmission Date: 20220423
  Serious: Yes (Life-Threatening, Hospitalization)
  Sender: FDA-Public Use
  Company Number: US-ROCHE-794808

PATIENT
  Age: 72 Year
  Sex: Male
  Weight: 71.6 kg

DRUGS (5)
  1. BEVACIZUMAB [Suspect]
     Active Substance: BEVACIZUMAB
     Indication: Head and neck cancer
     Dosage: DOSE: 15 MG/KG OVER 30-90 MIN, DAY 1, TOTAL DOSE ADMINISTERED THIS COURSE: 1075 MG
     Route: 042
     Dates: start: 20090416
  2. DOCETAXEL [Suspect]
     Active Substance: DOCETAXEL
     Indication: Head and neck cancer
     Route: 042
     Dates: start: 20090416
  3. CISPLATIN [Suspect]
     Active Substance: CISPLATIN
     Indication: Head and neck cancer
     Route: 042
     Dates: start: 20090416
  4. CELEBREX [Concomitant]
     Active Substance: CELECOXIB
  5. FENTANYL [Concomitant]
     Active Substance: FENTANYL

REACTIONS (5)
  - Dehydration [Recovered/Resolved]
  - Neck pain [Recovered/Resolved]
  - Pneumonia [Recovered/Resolved]
  - Stomatitis [Recovered/Resolved]
  - Laryngeal inflammation [Recovered/Resolved]

NARRATIVE: CASE EVENT DATE: 20090423
